FAERS Safety Report 6884789-8 (Version None)
Quarter: 2010Q3

REPORT INFORMATION
  Report Type: 
  Country: None (occurrence: None)
  Receive Date: 20100729
  Receipt Date: 20070824
  Transmission Date: 20110219
  Serious: No
  Sender: FDA-Public Use
  Company Number: US-PFIZER INC-2007072147

PATIENT
  Age: 70 Year
  Sex: Male

DRUGS (2)
  1. QUINAPRIL HCL [Suspect]
     Dates: start: 20070813
  2. GLIPIZIDE [Concomitant]

REACTIONS (1)
  - MEDICATION RESIDUE [None]
